FAERS Safety Report 10921114 (Version 2)
Quarter: 2015Q2

REPORT INFORMATION
  Report Type: Spontaneous
  Country: FR (occurrence: FR)
  Receive Date: 20150317
  Receipt Date: 20150427
  Transmission Date: 20150821
  Serious: Yes (Other)
  Sender: FDA-Public Use
  Company Number: FR-PFIZER INC-2015090299

PATIENT
  Age: 74 Year
  Sex: Female

DRUGS (13)
  1. FLUOROURACILE PFIZER [Suspect]
     Active Substance: FLUOROURACIL
     Dosage: 4000 MG IN 46 HOURS, CYCLIC
     Route: 041
     Dates: start: 20150202, end: 201502
  2. FLUOROURACILE PFIZER [Suspect]
     Active Substance: FLUOROURACIL
     Indication: RECTAL CANCER
     Dosage: UNK, CYCLIC
     Route: 042
     Dates: start: 20150119
  3. FLUOROURACILE PFIZER [Suspect]
     Active Substance: FLUOROURACIL
     Dosage: 650 MG IN 10 MINUTES, CYCLIC
     Route: 040
     Dates: start: 20150202, end: 20150202
  4. ELVORINE [Suspect]
     Active Substance: LEUCOVORIN CALCIUM
     Dosage: 330 MG, CYCLIC
     Route: 041
     Dates: start: 20150202, end: 20150202
  5. SOLU-MEDROL [Suspect]
     Active Substance: METHYLPREDNISOLONE SODIUM SUCCINATE
     Indication: PREMEDICATION
     Dosage: 70 MG (1 MG/KG), CYCLIC
     Route: 042
     Dates: start: 20150202, end: 20150202
  6. ELVORINE [Suspect]
     Active Substance: LEUCOVORIN CALCIUM
     Indication: RECTAL CANCER
     Dosage: UNK
     Dates: start: 20150119
  7. AVASTIN [Suspect]
     Active Substance: BEVACIZUMAB
     Dosage: 350 MG (5 MG/KG), CYCLIC
     Route: 041
     Dates: start: 20150202, end: 20150202
  8. AVASTIN [Suspect]
     Active Substance: BEVACIZUMAB
     Indication: RECTAL CANCER
     Dosage: UNK UNK, CYCLIC
     Route: 041
     Dates: start: 20150119
  9. OXALIPLATINE TEVA [Suspect]
     Active Substance: OXALIPLATIN
     Dosage: 140 MG, CYCLIC
     Route: 042
     Dates: start: 20150202, end: 20150202
  10. AVASTIN [Suspect]
     Active Substance: BEVACIZUMAB
     Dosage: UNK
  11. OXALIPLATINE TEVA [Suspect]
     Active Substance: OXALIPLATIN
     Indication: RECTAL CANCER
     Dosage: UNK
     Dates: start: 20150119
  12. ONDANSETRON AGUETTANT [Suspect]
     Active Substance: ONDANSETRON
     Indication: PREMEDICATION
     Dosage: 8 MG, CYCLIC
     Route: 042
     Dates: start: 20150202, end: 20150202
  13. LOXEN [Concomitant]
     Active Substance: NICARDIPINE HYDROCHLORIDE
     Dosage: 50 MG, UNK

REACTIONS (4)
  - Epistaxis [Recovered/Resolved]
  - Nausea [Recovered/Resolved]
  - Haemoptysis [Recovered/Resolved]
  - Melaena [Recovered/Resolved]

NARRATIVE: CASE EVENT DATE: 20150204
